FAERS Safety Report 4681315-9 (Version None)
Quarter: 2005Q2

REPORT INFORMATION
  Report Type: 
  Country: None (occurrence: None)
  Receive Date: 20050601
  Receipt Date: 20050517
  Transmission Date: 20051028
  Serious: Yes (Hospitalization)
  Sender: FDA-Public Use
  Company Number: US-2005-002373

PATIENT
  Age: 56 Year
  Sex: Female
  Weight: 129.7 kg

DRUGS (21)
  1. BETASERON [Suspect]
     Indication: MULTIPLE SCLEROSIS
     Dosage: UNK, EVERY 2D; SUBCUTANEOUS (SEE IMAGE)
     Route: 058
     Dates: start: 20030501, end: 20041227
  2. BETASERON [Suspect]
     Indication: MULTIPLE SCLEROSIS
     Dosage: UNK, EVERY 2D; SUBCUTANEOUS (SEE IMAGE)
     Route: 058
     Dates: start: 20050125
  3. COPAXONE [Suspect]
     Dates: start: 20041227, end: 20050125
  4. NORTRIPTYLINE HCL [Suspect]
     Indication: DEPRESSION
     Dosage: 50 MG, BED T., UNK (SEE IMAGE)
     Dates: start: 20050126, end: 20050126
  5. NORTRIPTYLINE HCL [Suspect]
     Indication: DEPRESSION
     Dosage: 50 MG, BED T., UNK (SEE IMAGE)
     Dates: end: 20050126
  6. MS CONTIN [Suspect]
     Indication: PAIN
     Dosage: 15 MG, 2X/DAY; ORAL (SEE IMAGE)
     Route: 048
     Dates: start: 20050126, end: 20050126
  7. ATENOLOL [Concomitant]
  8. DETROL - SLOW RELEASE (TOLTERODINE L-TARTRATE) [Concomitant]
  9. TOPAMAX [Concomitant]
  10. LEXAPRO [Concomitant]
  11. ASPIRIN [Concomitant]
  12. PREVACID [Concomitant]
  13. RESTASIS (CICLOSPORIN) [Concomitant]
  14. PERCOCET [Concomitant]
  15. PREDNISONE TAB [Concomitant]
  16. ENDOCET (OXYCODONE HYDROCHLORIDE) [Concomitant]
  17. EVOXAC [Concomitant]
  18. REQUIP [Concomitant]
  19. ATIVAN [Concomitant]
  20. TRAMADOL [Concomitant]
  21. ULTRACET [Concomitant]

REACTIONS (18)
  - AMNESIA [None]
  - COMA [None]
  - CONDITION AGGRAVATED [None]
  - COORDINATION ABNORMAL [None]
  - DEPRESSED LEVEL OF CONSCIOUSNESS [None]
  - DEPRESSION [None]
  - DYSARTHRIA [None]
  - LOBAR PNEUMONIA [None]
  - MENTAL STATUS CHANGES [None]
  - MULTIPLE DRUG OVERDOSE ACCIDENTAL [None]
  - MULTIPLE SCLEROSIS [None]
  - NEUROGENIC BLADDER [None]
  - RESPIRATORY FAILURE [None]
  - RESPIRATORY RATE INCREASED [None]
  - SENSORY DISTURBANCE [None]
  - SINUS TACHYCARDIA [None]
  - SOMATOFORM DISORDER [None]
  - URINARY TRACT INFECTION [None]
